FAERS Safety Report 11671174 (Version 1)
Quarter: 2015Q4

REPORT INFORMATION
  Report Type: Spontaneous
  Country: US (occurrence: US)
  Receive Date: 20151028
  Receipt Date: 20151028
  Transmission Date: 20160304
  Serious: Yes (Death, Hospitalization)
  Sender: FDA-Public Use
  Company Number: US-ROCHE-1649781

PATIENT
  Age: 73 Year
  Sex: Male
  Weight: 81 kg

DRUGS (14)
  1. CLINDAMYCIN [Suspect]
     Active Substance: CLINDAMYCIN\CLINDAMYCIN PHOSPHATE
     Indication: GOUTY ARTHRITIS
     Route: 042
     Dates: start: 20150814, end: 20150814
  2. RED YEAST RICE [Concomitant]
     Active Substance: DIETARY SUPPLEMENT
     Route: 065
     Dates: start: 20150601
  3. PIOGLITAZONE. [Concomitant]
     Active Substance: PIOGLITAZONE
     Route: 065
     Dates: start: 20150407
  4. UBIDECARENONE [Concomitant]
     Active Substance: UBIDECARENONE
     Route: 065
     Dates: start: 19980315
  5. INDOCIN [Concomitant]
     Active Substance: INDOMETHACIN\INDOMETHACIN SODIUM
     Route: 065
     Dates: start: 20150814
  6. ASPIRIN. [Concomitant]
     Active Substance: ASPIRIN
     Route: 065
     Dates: start: 19980205
  7. TORADOL [Concomitant]
     Active Substance: KETOROLAC TROMETHAMINE
     Route: 065
     Dates: start: 20150814, end: 20150814
  8. ROCEPHIN [Suspect]
     Active Substance: CEFTRIAXONE SODIUM
     Indication: GOUTY ARTHRITIS
     Route: 042
     Dates: start: 20150814, end: 20150814
  9. NORCO [Concomitant]
     Active Substance: ACETAMINOPHEN\HYDROCODONE BITARTRATE
     Route: 065
     Dates: start: 20150814
  10. LEVOTHYROXIN [Concomitant]
     Active Substance: LEVOTHYROXINE
     Route: 065
     Dates: start: 19990625
  11. FISH OIL [Concomitant]
     Active Substance: FISH OIL
     Route: 065
     Dates: start: 20100405
  12. LISINOPRIL. [Concomitant]
     Active Substance: LISINOPRIL
     Route: 065
     Dates: start: 19980813
  13. NAPROXEN. [Concomitant]
     Active Substance: NAPROXEN
     Route: 065
  14. SITAGLIPTIN [Concomitant]
     Active Substance: SITAGLIPTIN
     Route: 065
     Dates: start: 20130315

REACTIONS (3)
  - Clostridium difficile colitis [Not Recovered/Not Resolved]
  - Sepsis [Fatal]
  - Megacolon [Fatal]

NARRATIVE: CASE EVENT DATE: 20150828
